FAERS Safety Report 22235986 (Version 1)
Quarter: 2023Q2

REPORT INFORMATION
  Report Type: Spontaneous
  Country: US (occurrence: US)
  Receive Date: 20230420
  Receipt Date: 20230420
  Transmission Date: 20230721
  Serious: No
  Sender: FDA-Public Use
  Company Number: US-MYLANLABS-2023M1042259

PATIENT
  Sex: Female
  Weight: 104.33 kg

DRUGS (1)
  1. ALPRAZOLAM [Suspect]
     Active Substance: ALPRAZOLAM
     Indication: Muscle relaxant therapy
     Dosage: UNK
     Route: 065

REACTIONS (1)
  - Off label use [Unknown]
